FAERS Safety Report 5363723-6 (Version None)
Quarter: 2007Q2

REPORT INFORMATION
  Report Type: 
  Country: None (occurrence: None)
  Receive Date: 20070618
  Receipt Date: 20070618
  Transmission Date: 20071010
  Serious: Yes (Life-Threatening, Hospitalization)
  Sender: FDA-Public Use
  Company Number: None

PATIENT
  Age: 34 Year
  Sex: Female
  Weight: 47.6277 kg

DRUGS (1)
  1. BACTRIM [Suspect]
     Indication: SINUSITIS
     Dosage: 2  PILLS DAILLY FOR 10 DAYS  PO
     Route: 048
     Dates: start: 20070114, end: 20070123

REACTIONS (1)
  - STEVENS-JOHNSON SYNDROME [None]
